FAERS Safety Report 18931408 (Version 1)
Quarter: 2021Q1

REPORT INFORMATION
  Report Type: Other
  Country: SE (occurrence: SE)
  Receive Date: 20210224
  Receipt Date: 20210224
  Transmission Date: 20210420
  Serious: Yes (Hospitalization)
  Sender: FDA-Public Use
  Company Number: SE-CELLTRION INC.-2021SE002143

PATIENT

DRUGS (5)
  1. PREDNISOLONE. [Suspect]
     Active Substance: PREDNISOLONE
     Indication: B-CELL LYMPHOMA
     Dosage: UNK
     Dates: start: 202008
  2. VINCRISTINE [Suspect]
     Active Substance: VINCRISTINE
     Indication: B-CELL LYMPHOMA
     Dosage: UNK
     Dates: start: 202008
  3. CYCLOPHOSPHAMIDE ANHYDROUS. [Suspect]
     Active Substance: CYCLOPHOSPHAMIDE ANHYDROUS
     Indication: B-CELL LYMPHOMA
     Dosage: UNK
     Dates: start: 202008
  4. RITUXIMAB (UNKNOWN) [Suspect]
     Active Substance: RITUXIMAB
     Indication: B-CELL LYMPHOMA
     Dosage: UNK
     Dates: start: 202008
  5. DOXORUBICIN [Suspect]
     Active Substance: DOXORUBICIN
     Indication: B-CELL LYMPHOMA
     Dosage: UNK
     Dates: start: 202008

REACTIONS (5)
  - Acute kidney injury [Not Recovered/Not Resolved]
  - Tumour lysis syndrome [Unknown]
  - Hypercalcaemia [Recovered/Resolved]
  - Hypophosphataemia [Unknown]
  - Hypokalaemia [Unknown]

NARRATIVE: CASE EVENT DATE: 202008
